APPROVED DRUG PRODUCT: CLINDAMYCIN PHOSPHATE
Active Ingredient: CLINDAMYCIN PHOSPHATE
Strength: EQ 1% BASE
Dosage Form/Route: SOLUTION;TOPICAL
Application: A064050 | Product #001 | TE Code: AT
Applicant: PADAGIS US LLC
Approved: Nov 30, 1995 | RLD: No | RS: Yes | Type: RX